FAERS Safety Report 6596461-2 (Version None)
Quarter: 2010Q1

REPORT INFORMATION
  Report Type: 
  Country: None (occurrence: None)
  Receive Date: 20100222
  Receipt Date: 20100222
  Transmission Date: 20100710
  Serious: Yes (Hospitalization)
  Sender: FDA-Public Use
  Company Number: None

PATIENT
  Age: 76 Year
  Sex: Male

DRUGS (1)
  1. BUMETANIDE [Suspect]
     Indication: CARDIAC FAILURE CONGESTIVE
     Dosage: 2 MG BID PO
     Route: 048
     Dates: start: 20100204, end: 20100208

REACTIONS (1)
  - ANGIOEDEMA [None]
